FAERS Safety Report 24269495 (Version 3)
Quarter: 2024Q3

REPORT INFORMATION
  Report Type: Spontaneous
  Country: JP (occurrence: JP)
  Receive Date: 20240830
  Receipt Date: 20240917
  Transmission Date: 20241017
  Serious: Yes (Other)
  Sender: RADIUS PHARM
  Company Number: JP-RADIUS HEALTH, INC.-2024JP005831

PATIENT
  Sex: Female

DRUGS (6)
  1. ABALOPARATIDE [Suspect]
     Active Substance: ABALOPARATIDE
     Indication: Osteoporosis
     Dosage: 80 MICROGRAM, QD
     Route: 058
     Dates: start: 20240717, end: 20240801
  2. ABALOPARATIDE [Suspect]
     Active Substance: ABALOPARATIDE
     Dosage: 80 MICROGRAM ONCE EVERY THREE DAYS
     Route: 058
     Dates: start: 20240802, end: 20240823
  3. MAGNESIUM OXIDE [Concomitant]
     Active Substance: MAGNESIUM OXIDE
     Indication: Product used for unknown indication
     Dosage: UNK
     Route: 065
  4. LIPITOR [Concomitant]
     Active Substance: ATORVASTATIN CALCIUM
     Indication: Product used for unknown indication
     Route: 065
  5. BETAMETHASONE DIPROPIONATE [Concomitant]
     Active Substance: BETAMETHASONE DIPROPIONATE
     Indication: Product used for unknown indication
     Route: 061
  6. LOXOPROFEN SODIUM DIHYDRATE [Concomitant]
     Active Substance: LOXOPROFEN SODIUM DIHYDRATE
     Indication: Product used for unknown indication
     Dosage: UNK
     Dates: start: 20240515

REACTIONS (11)
  - Dizziness [Recovered/Resolved]
  - Prescribed underdose [Unknown]
  - Asthenia [Recovered/Resolved]
  - Generalised oedema [Recovered/Resolved]
  - Blood calcium increased [Recovered/Resolved]
  - Sarcoidosis [Unknown]
  - Head discomfort [Unknown]
  - Headache [Recovered/Resolved]
  - Weight decreased [Unknown]
  - Malaise [Recovered/Resolved]
  - Skin lesion [Recovered/Resolved]

NARRATIVE: CASE EVENT DATE: 20240101
